FAERS Safety Report 22152956 (Version 1)
Quarter: 2023Q1

REPORT INFORMATION
  Report Type: Spontaneous
  Country: US (occurrence: None)
  Receive Date: 20230329
  Receipt Date: 20230329
  Transmission Date: 20230418
  Serious: Yes (Life-Threatening, Other)
  Sender: FDA-Public Use
  Company Number: None

PATIENT
  Age: 34 Year
  Sex: Female
  Weight: 84.15 kg

DRUGS (6)
  1. BUPROPION [Suspect]
     Active Substance: BUPROPION
     Indication: Depression
     Dosage: OTHER QUANTITY : 1 TABLET(S);?FREQUENCY : DAILY;?
     Route: 055
  2. PROPRANOLOL HYDROCHLORIDE [Concomitant]
     Active Substance: PROPRANOLOL HYDROCHLORIDE
  3. CYCLOBENZAPRINE [Concomitant]
     Active Substance: CYCLOBENZAPRINE
  4. IBUPROFEN [Concomitant]
     Active Substance: IBUPROFEN
  5. LEVOTHYROXINE [Concomitant]
     Active Substance: LEVOTHYROXINE
  6. PROBIOTICS NOS [Concomitant]
     Active Substance: PROBIOTICS NOS

REACTIONS (14)
  - Skin exfoliation [None]
  - Dyspnoea [None]
  - Dysphagia [None]
  - Dysphonia [None]
  - Swollen tongue [None]
  - Headache [None]
  - Dizziness [None]
  - Vitreous floaters [None]
  - Disturbance in attention [None]
  - Somnolence [None]
  - Chest pain [None]
  - Pulmonary pain [None]
  - Mobility decreased [None]
  - Eye irritation [None]

NARRATIVE: CASE EVENT DATE: 20230323
